FAERS Safety Report 4673768-7 (Version None)
Quarter: 2005Q2

REPORT INFORMATION
  Report Type: 
  Country: None (occurrence: None)
  Receive Date: 20050524
  Receipt Date: 20050513
  Transmission Date: 20051028
  Serious: No
  Sender: FDA-Public Use
  Company Number: 11142

PATIENT
  Sex: Female

DRUGS (3)
  1. METHOTREXATE [Suspect]
     Indication: PSORIASIS
     Dosage: 10 MG, PO
     Route: 048
     Dates: start: 20050428
  2. FOLIC ACID [Concomitant]
  3. FLUTICASONE PROPIONATE [Concomitant]

REACTIONS (1)
  - PIGMENTATION DISORDER [None]
